FAERS Safety Report 6592747-6 (Version None)
Quarter: 2010Q1

REPORT INFORMATION
  Report Type: 
  Country: None (occurrence: None)
  Receive Date: 20100212
  Receipt Date: 20100122
  Transmission Date: 20100710
  Serious: Yes (Death)
  Sender: FDA-Public Use
  Company Number: 2010-00120

PATIENT
  Age: 74 Year
  Sex: Male

DRUGS (8)
  1. AMLODIPINE [Suspect]
     Indication: DRUG USE FOR UNKNOWN INDICATION
     Dosage: 5 MG, (5 MG, 1 IN 1 D),  ORAL
     Route: 048
  2. SIMVASTATIN [Suspect]
     Indication: DRUG USE FOR UNKNOWN INDICATION
     Dosage: ORAL
     Route: 048
  3. PERINDOPRIL [Suspect]
     Indication: DRUG USE FOR UNKNOWN INDICATION
     Dosage: 8 MG (8 MG, 1 IN 1 D)
  4. ASPIRIN [Suspect]
     Indication: DRUG USE FOR UNKNOWN INDICATION
     Dosage: 75 MG (75 MG, 1 IN 1 D), ORAL
     Route: 048
  5. IBUPROFEN [Suspect]
     Indication: DRUG USE FOR UNKNOWN INDICATION
     Dosage: 400 MG, ORAL
     Route: 048
  6. OMEPRAZOLE [Suspect]
     Indication: DRUG USE FOR UNKNOWN INDICATION
     Dosage: 20 MG (20 MG, 1 IN 1 D)
  7. AMOXICILLIN [Concomitant]
  8. THYROXINE SODIUM (LEVOTHYROXINE+LEVOTHYROXINE) [Concomitant]

REACTIONS (12)
  - ACUTE RESPIRATORY DISTRESS SYNDROME [None]
  - ALVEOLITIS [None]
  - DERMATOMYOSITIS [None]
  - DIFFUSE ALVEOLAR DAMAGE [None]
  - DRUG ERUPTION [None]
  - GENERAL PHYSICAL HEALTH DETERIORATION [None]
  - HAEMOPTYSIS [None]
  - LOWER RESPIRATORY TRACT INFECTION [None]
  - OROPHARYNGEAL PAIN [None]
  - RENAL FAILURE ACUTE [None]
  - RENAL TUBULAR NECROSIS [None]
  - WEIGHT DECREASED [None]
